FAERS Safety Report 4375885-8 (Version None)
Quarter: 2004Q2

REPORT INFORMATION
  Report Type: 
  Country: None (occurrence: None)
  Receive Date: 20040607
  Receipt Date: 20040524
  Transmission Date: 20050107
  Serious: Yes (Hospitalization)
  Sender: FDA-Public Use
  Company Number: GB-JNJFOC-20040505127

PATIENT
  Age: 61 Year
  Sex: Male

DRUGS (9)
  1. REMICADE [Suspect]
     Indication: RHEUMATOID ARTHRITIS
     Dosage: 282 MG, INTRAVENOUS
     Route: 042
     Dates: start: 20031014
  2. CYCLOSPORINE [Concomitant]
  3. CALCIUM [Concomitant]
  4. PREDNISOLONE [Concomitant]
  5. NAPROXEN [Concomitant]
  6. ERGOCAL (ERGOCALCIFEROL) [Concomitant]
  7. LANSOPRAZOLE [Concomitant]
  8. FUROSEMIDE [Concomitant]
  9. LOSARTAN POTASSIUM [Concomitant]

REACTIONS (1)
  - UMBILICAL HERNIA REPAIR [None]
